FAERS Safety Report 8674131 (Version 3)
Quarter: 2013Q1

REPORT INFORMATION
  Report Type: Spontaneous
  Country: US (occurrence: US)
  Receive Date: 20120719
  Receipt Date: 20130102
  Transmission Date: 20140127
  Serious: Yes (Hospitalization)
  Sender: FDA-Public Use
  Company Number: US-GILEAD-2012-0057960

PATIENT
  Sex: Male

DRUGS (3)
  1. LETAIRIS [Suspect]
     Indication: PULMONARY HYPERTENSION
     Dosage: 10 MG, UNK
     Route: 048
     Dates: start: 20110601
  2. LETAIRIS [Suspect]
     Indication: CARDIAC VALVE DISEASE
  3. LETAIRIS [Suspect]
     Indication: UNEVALUABLE EVENT

REACTIONS (3)
  - Myocardial infarction [Not Recovered/Not Resolved]
  - Lung disorder [Not Recovered/Not Resolved]
  - Endotracheal intubation [Not Recovered/Not Resolved]
